FAERS Safety Report 22813303 (Version 2)
Quarter: 2024Q3

REPORT INFORMATION
  Report Type: Report from Study
  Country: EG (occurrence: EG)
  Receive Date: 20230811
  Receipt Date: 20240730
  Transmission Date: 20241017
  Serious: Yes (Hospitalization, Disabling)
  Sender: NOVARTIS
  Company Number: EG-002147023-NVSC2023EG175118

PATIENT
  Age: 38 Year
  Sex: Male

DRUGS (2)
  1. GILENYA [Suspect]
     Active Substance: FINGOLIMOD HYDROCHLORIDE
     Indication: Multiple sclerosis
     Dosage: 0.5 MG, QD (AFTER BREAKFAST)
     Route: 048
     Dates: start: 2021, end: 20240709
  2. VITAMIN B [Concomitant]
     Active Substance: VITAMIN B
     Indication: Supplementation therapy
     Dosage: 2 DOSAGE FORM, QW
     Route: 030
     Dates: start: 2010

REACTIONS (4)
  - Multiple sclerosis relapse [Recovering/Resolving]
  - Gait inability [Unknown]
  - Gait disturbance [Not Recovered/Not Resolved]
  - Fatigue [Not Recovered/Not Resolved]

NARRATIVE: CASE EVENT DATE: 20230701
